FAERS Safety Report 8953741 (Version 1)
Quarter: 2012Q4

REPORT INFORMATION
  Report Type: 
  Country: GB (occurrence: GB)
  Receive Date: 20121206
  Receipt Date: 20121206
  Transmission Date: 20130627
  Serious: No
  Sender: FDA-Public Use
  Company Number: GB-009507513-1109GBR00056

PATIENT
  Age: 32 Year
  Sex: Female

DRUGS (6)
  1. ISENTRESS [Suspect]
     Indication: HIV INFECTION
     Dosage: UNK
     Route: 048
  2. TRUVADA [Concomitant]
     Indication: HIV INFECTION
  3. NEVIRAPINE [Concomitant]
     Indication: HIV INFECTION
  4. ZIDOVUDINE [Concomitant]
     Indication: HIV INFECTION
     Route: 042
  5. RITONAVIR [Concomitant]
     Indication: HIV INFECTION
  6. ATAZANAVIR [Concomitant]
     Indication: HIV INFECTION

REACTIONS (1)
  - Exposure during pregnancy [Recovered/Resolved]
